FAERS Safety Report 8559338-9 (Version None)
Quarter: 2012Q3

REPORT INFORMATION
  Report Type: 
  Country: None (occurrence: None)
  Receive Date: 20120802
  Receipt Date: 20120730
  Transmission Date: 20120928
  Serious: Yes (Other)
  Sender: FDA-Public Use
  Company Number: PHHY2012DE066214

PATIENT
  Age: 43 Year
  Sex: Male

DRUGS (2)
  1. CLOZAPINE [Suspect]
     Dosage: 400-500 MG
     Route: 048
  2. CLOZAPINE [Suspect]
     Dosage: 100 MG
     Route: 048

REACTIONS (1)
  - DENTAL CARIES [None]
